FAERS Safety Report 20792542 (Version 3)
Quarter: 2022Q2

REPORT INFORMATION
  Report Type: Spontaneous
  Country: US (occurrence: US)
  Receive Date: 20220506
  Receipt Date: 20220519
  Transmission Date: 20220720
  Serious: Yes (Other)
  Sender: FDA-Public Use
  Company Number: US-BIOGEN-2022BI01118514

PATIENT
  Age: 52 Year
  Sex: Female

DRUGS (1)
  1. TECFIDERA [Suspect]
     Active Substance: DIMETHYL FUMARATE
     Indication: Multiple sclerosis
     Route: 065
     Dates: start: 20191014, end: 202109

REACTIONS (14)
  - Blindness [Unknown]
  - Pain [Unknown]
  - Anxiety [Unknown]
  - Stress [Unknown]
  - Memory impairment [Unknown]
  - Confusional state [Unknown]
  - Fear [Unknown]
  - Time perception altered [Not Recovered/Not Resolved]
  - Multiple sclerosis [Unknown]
  - Migraine [Not Recovered/Not Resolved]
  - Loss of consciousness [Recovered/Resolved]
  - Hot flush [Unknown]
  - Flushing [Recovered/Resolved]
  - Feeling hot [Recovered/Resolved]

NARRATIVE: CASE EVENT DATE: 20191001
